FAERS Safety Report 18243201 (Version 1)
Quarter: 2020Q3

REPORT INFORMATION
  Report Type: Spontaneous
  Country: US (occurrence: US)
  Receive Date: 20200908
  Receipt Date: 20200908
  Transmission Date: 20201103
  Serious: Yes (Life-Threatening, Hospitalization)
  Sender: FDA-Public Use
  Company Number: US-BAYER-2020-181819

PATIENT

DRUGS (3)
  1. ACETYLSALICYLIC ACID [Suspect]
     Active Substance: ASPIRIN
     Route: 064
  2. LOW MOLECULAR WEIGHT HEPARIN [Concomitant]
     Active Substance: UNSPECIFIED INGREDIENT
     Route: 064
  3. FUROSEMIDE. [Concomitant]
     Active Substance: FUROSEMIDE
     Route: 064

REACTIONS (4)
  - Apgar score low [None]
  - Premature baby [None]
  - Foetal exposure during pregnancy [None]
  - Respiratory disorder neonatal [None]
